FAERS Safety Report 19752731 (Version 1)
Quarter: 2021Q3

REPORT INFORMATION
  Report Type: Spontaneous
  Country: RU (occurrence: RU)
  Receive Date: 20210827
  Receipt Date: 20210827
  Transmission Date: 20211014
  Serious: Yes (Death, Other)
  Sender: FDA-Public Use
  Company Number: RU-AMGEN-RUSSP2021130582

PATIENT

DRUGS (5)
  1. BLINATUMOMAB [Suspect]
     Active Substance: BLINATUMOMAB
     Indication: CHRONIC MYELOID LEUKAEMIA RECURRENT
  2. BLINATUMOMAB [Suspect]
     Active Substance: BLINATUMOMAB
     Indication: ACUTE LYMPHOCYTIC LEUKAEMIA RECURRENT
  3. BLINATUMOMAB [Suspect]
     Active Substance: BLINATUMOMAB
     Indication: NON-HODGKIN^S LYMPHOMA RECURRENT
  4. BLINATUMOMAB [Suspect]
     Active Substance: BLINATUMOMAB
     Indication: ACUTE BIPHENOTYPIC LEUKAEMIA
  5. BLINATUMOMAB [Suspect]
     Active Substance: BLINATUMOMAB
     Indication: MINIMAL RESIDUAL DISEASE
     Dosage: UNK
     Route: 065

REACTIONS (24)
  - Acinetobacter infection [Unknown]
  - Herpes simplex [Unknown]
  - Urinary tract infection [Unknown]
  - Stenotrophomonas infection [Unknown]
  - Escherichia bacteraemia [Unknown]
  - Encephalitis [Unknown]
  - Soft tissue infection [Unknown]
  - Herpes virus infection [Unknown]
  - Enterocolitis [Unknown]
  - Staphylococcal infection [Unknown]
  - Bronchopulmonary aspergillosis [Unknown]
  - Cytomegalovirus infection [Unknown]
  - Klebsiella infection [Unknown]
  - Pneumonia [Unknown]
  - Malassezia infection [Unknown]
  - Candida infection [Unknown]
  - Disease progression [Fatal]
  - Enterobacter infection [Unknown]
  - Trichosporon infection [Unknown]
  - Sepsis [Unknown]
  - Alpha haemolytic streptococcal infection [Unknown]
  - Bacillus infection [Unknown]
  - Epstein-Barr virus infection [Unknown]
  - Proteus infection [Unknown]
